FAERS Safety Report 6242210-7 (Version None)
Quarter: 2009Q2

REPORT INFORMATION
  Report Type: 
  Country: None (occurrence: None)
  Receive Date: 20090624
  Receipt Date: 20090618
  Transmission Date: 20091009
  Serious: Yes (Hospitalization, Other)
  Sender: FDA-Public Use
  Company Number: US-BRISTOL-MYERS SQUIBB COMPANY-14671531

PATIENT
  Age: 82 Year
  Sex: Female

DRUGS (7)
  1. COUMADIN [Suspect]
     Indication: DEEP VEIN THROMBOSIS
     Dosage: UNK-JAN09  JAN09-ONG (1 MG DAILY) RESTARTED IN JAN-2009
     Route: 065
  2. REVLIMID [Suspect]
     Indication: MULTIPLE MYELOMA
     Dosage: JUN08-UNK:5MG BID 31JUL08-07JAN09:5MG,1IN1 DAY JAN09-ONGOING:10MG,1IN1 DAY
     Route: 048
     Dates: start: 20080601
  3. ARANESP [Concomitant]
     Route: 065
  4. ROBITUSSIN [Concomitant]
     Indication: COUGH
     Route: 065
     Dates: start: 20090101
  5. HYCODAN [Concomitant]
     Indication: COUGH
     Route: 065
     Dates: start: 20090101
  6. MELPHALAN HYDROCHLORIDE [Concomitant]
     Indication: MULTIPLE MYELOMA
     Dosage: CYCLE 3 IN SEP-2008.  AGAIN ON 13-OCT-2008 UNTIL L7-OCT-2008
     Route: 065
  7. PREDNISONE [Concomitant]
     Indication: MULTIPLE MYELOMA
     Dosage: CYCLE 3 IN SEP-2008.  AGAIN ON 13-OCT-2008 UNTIL L7-OCT-2008
     Route: 065

REACTIONS (14)
  - BREAST SWELLING [None]
  - CARDIAC FAILURE CONGESTIVE [None]
  - CELLULITIS [None]
  - CHONDROCALCINOSIS PYROPHOSPHATE [None]
  - COAGULOPATHY [None]
  - CONSTIPATION [None]
  - ERYTHEMA [None]
  - FEBRILE NEUTROPENIA [None]
  - MENTAL STATUS CHANGES [None]
  - NASOPHARYNGITIS [None]
  - PANCYTOPENIA [None]
  - PNEUMONIA [None]
  - RENAL FAILURE ACUTE [None]
  - VULVAL CELLULITIS [None]
